FAERS Safety Report 23733369 (Version 1)
Quarter: 2024Q2

REPORT INFORMATION
  Report Type: Spontaneous
  Country: CA (occurrence: CA)
  Receive Date: 20240411
  Receipt Date: 20240411
  Transmission Date: 20240715
  Serious: Yes (Death, Hospitalization)
  Sender: FDA-Public Use
  Company Number: CA-FreseniusKabi-FK202405727

PATIENT
  Age: 76 Year
  Sex: Female
  Weight: 82 kg

DRUGS (2)
  1. HEPARIN SODIUM [Suspect]
     Active Substance: HEPARIN SODIUM
     Indication: Product used for unknown indication
     Dosage: DOSAGE FORM:  SOLUTION SUBCUTANEOUS?ROUTE OF ADMIN- INTRAVENOUS DRIP
     Route: 041
  2. ENOXAPARIN SODIUM [Suspect]
     Active Substance: ENOXAPARIN SODIUM
     Indication: Product used for unknown indication
     Dosage: SOLUTION SUBCUTANEOUS
     Route: 058

REACTIONS (1)
  - Retroperitoneal haemorrhage [Fatal]
